FAERS Safety Report 10038764 (Version 3)
Quarter: 2014Q2

REPORT INFORMATION
  Report Type: Report from Study
  Country: CN (occurrence: CN)
  Receive Date: 20140326
  Receipt Date: 20140506
  Transmission Date: 20141212
  Serious: Yes (Hospitalization, Other)
  Sender: FDA-Public Use
  Company Number: CN-BAYER-2014-021535

PATIENT
  Age: 65 Year
  Sex: Female

DRUGS (2)
  1. NEXAVAR [Suspect]
     Indication: HEPATIC CANCER METASTATIC
     Dosage: 400 MG, BID
     Route: 048
     Dates: start: 20140117, end: 20140220
  2. NEXAVAR [Suspect]
     Indication: METASTASES TO LYMPH NODES
     Dosage: 400 MG, BID
     Dates: start: 20140329, end: 20140404

REACTIONS (8)
  - Diarrhoea [None]
  - Palmar-plantar erythrodysaesthesia syndrome [None]
  - Jaundice [Recovered/Resolved]
  - Blood bilirubin increased [None]
  - Ascites [None]
  - Decreased appetite [None]
  - Hepatocellular carcinoma [None]
  - Pyrexia [None]
